FAERS Safety Report 7510954-2 (Version None)
Quarter: 2011Q2

REPORT INFORMATION
  Report Type: 
  Country: None (occurrence: None)
  Receive Date: 20110531
  Receipt Date: 20110524
  Transmission Date: 20111010
  Serious: No
  Sender: FDA-Public Use
  Company Number: US-PFIZER INC-2011112755

PATIENT
  Sex: Female
  Weight: 63.492 kg

DRUGS (3)
  1. DEPO-PROVERA [Suspect]
     Indication: CONTRACEPTION
     Dosage: UNK
  2. PARAGARD T 380A [Suspect]
     Dosage: 40 D
     Dates: start: 20110421
  3. PARAGARD T 380A [Suspect]
     Indication: CONTRACEPTION
     Dosage: UNK
     Route: 015
     Dates: start: 20110301, end: 20110411

REACTIONS (1)
  - METRORRHAGIA [None]
